FAERS Safety Report 25089228 (Version 1)
Quarter: 2025Q1

REPORT INFORMATION
  Report Type: Spontaneous
  Country: CH (occurrence: CH)
  Receive Date: 20250318
  Receipt Date: 20250318
  Transmission Date: 20250408
  Serious: Yes (Death)
  Sender: PAREXEL
  Company Number: CH-STEMLINE THERAPEUTICS B.V.-2025-STML-CH000817

PATIENT

DRUGS (3)
  1. TAGRAXOFUSP [Suspect]
     Active Substance: TAGRAXOFUSP
     Indication: Blastic plasmacytoid dendritic cell neoplasia
     Route: 065
  2. PREDNISONE [Suspect]
     Active Substance: PREDNISONE
     Indication: Blastic plasmacytoid dendritic cell neoplasia
     Route: 065
  3. CYCLOPHOSPHAMIDE [Suspect]
     Active Substance: CYCLOPHOSPHAMIDE
     Indication: Blastic plasmacytoid dendritic cell neoplasia
     Route: 065

REACTIONS (3)
  - Death [Fatal]
  - Disease recurrence [Unknown]
  - Off label use [Unknown]
